FAERS Safety Report 9066812 (Version 1)
Quarter: 2013Q1

REPORT INFORMATION
  Report Type: Spontaneous
  Country: FR (occurrence: FR)
  Receive Date: 20130214
  Receipt Date: 20130214
  Transmission Date: 20140127
  Serious: Yes (Death, Hospitalization)
  Sender: FDA-Public Use
  Company Number: FR-GLAXOSMITHKLINE-B0865106A

PATIENT
  Age: 84 Year
  Sex: Female

DRUGS (4)
  1. ARIXTRA [Suspect]
     Indication: THROMBOSIS PROPHYLAXIS
     Route: 058
     Dates: start: 20130110, end: 20130119
  2. AMOXICILLIN [Concomitant]
  3. CLAVULANIC ACID [Concomitant]
  4. LEVOTHYROX [Concomitant]

REACTIONS (7)
  - Hepatic haematoma [Fatal]
  - Colonic haematoma [Fatal]
  - Abdominal pain [Unknown]
  - Vomiting [Unknown]
  - Diarrhoea [Unknown]
  - Hypotension [Unknown]
  - Prescribed overdose [Unknown]
